FAERS Safety Report 15306267 (Version 1)
Quarter: 2018Q3

REPORT INFORMATION
  Report Type: Spontaneous
  Country: US (occurrence: US)
  Receive Date: 20180810
  Receipt Date: 20180810
  Transmission Date: 20181010
  Serious: Yes (Other)
  Sender: FDA-Public Use
  Company Number: None

PATIENT
  Age: 70 Year
  Sex: Female
  Weight: 107.14 kg

DRUGS (21)
  1. VALSTAR [Concomitant]
     Active Substance: VALRUBICIN
  2. LISINOPRIL. [Concomitant]
     Active Substance: LISINOPRIL
  3. PROAIR HFA [Concomitant]
     Active Substance: ALBUTEROL SULFATE
  4. OXYCODONE [Concomitant]
     Active Substance: OXYCODONE
  5. CAPECITABINE. [Suspect]
     Active Substance: CAPECITABINE
     Indication: BREAST CANCER
     Route: 048
     Dates: start: 20180612
  6. CYCLOBENZAPRINE. [Concomitant]
     Active Substance: CYCLOBENZAPRINE
  7. ASPIRIN. [Concomitant]
     Active Substance: ASPIRIN
  8. VITAMIN D [Concomitant]
     Active Substance: CHOLECALCIFEROL
  9. PROVENTIL [Concomitant]
     Active Substance: ALBUTEROL
  10. SENNA [Concomitant]
     Active Substance: SENNA LEAF\SENNOSIDES\SENNOSIDES A AND B
  11. ONDANSETRON [Concomitant]
     Active Substance: ONDANSETRON
  12. CLONAZEPAM. [Concomitant]
     Active Substance: CLONAZEPAM
  13. MAGNESIUM [Concomitant]
     Active Substance: MAGNESIUM
  14. PROCHLORPERAZINE. [Concomitant]
     Active Substance: PROCHLORPERAZINE
  15. MIRALAX [Concomitant]
     Active Substance: POLYETHYLENE GLYCOL 3350
  16. METHADONE [Concomitant]
     Active Substance: METHADONE HYDROCHLORIDE
  17. LANTUS [Concomitant]
     Active Substance: INSULIN GLARGINE
  18. PRILOSEC [Concomitant]
     Active Substance: OMEPRAZOLE MAGNESIUM
  19. DEXAMETHASONE. [Concomitant]
     Active Substance: DEXAMETHASONE
  20. HUMALOG [Concomitant]
     Active Substance: INSULIN LISPRO
  21. NYSTATIN. [Concomitant]
     Active Substance: NYSTATIN

REACTIONS (2)
  - Vomiting [None]
  - Nausea [None]
